FAERS Safety Report 7675151-9 (Version None)
Quarter: 2011Q3

REPORT INFORMATION
  Report Type: 
  Country: None (occurrence: None)
  Receive Date: 20110810
  Receipt Date: 20110729
  Transmission Date: 20111222
  Serious: Yes (Other)
  Sender: FDA-Public Use
  Company Number: CA-JNJFOC-20110801549

PATIENT
  Sex: Female

DRUGS (3)
  1. SOLU-CORTEF [Concomitant]
     Indication: PREMEDICATION
     Route: 042
     Dates: start: 20110729
  2. REMICADE [Suspect]
     Indication: CROHN'S DISEASE
     Route: 042
  3. REMICADE [Suspect]
     Route: 042
     Dates: start: 20110729

REACTIONS (4)
  - INFUSION RELATED REACTION [None]
  - PARAESTHESIA [None]
  - DYSPNOEA [None]
  - COUGH [None]
